FAERS Safety Report 6820014-1 (Version None)
Quarter: 2010Q3

REPORT INFORMATION
  Report Type: 
  Country: None (occurrence: None)
  Receive Date: 20100707
  Receipt Date: 20100630
  Transmission Date: 20110219
  Serious: Yes (Death, Hospitalization)
  Sender: FDA-Public Use
  Company Number: FR-ELI_LILLY_AND_COMPANY-FR201007000250

PATIENT
  Age: 47 Year
  Sex: Female

DRUGS (12)
  1. ALIMTA [Suspect]
     Indication: LUNG ADENOCARCINOMA
     Dosage: 500 MG/M2, 3/W
     Route: 042
     Dates: start: 20091208
  2. CISPLATIN [Concomitant]
     Indication: LUNG ADENOCARCINOMA
     Dosage: UNK, UNKNOWN
     Route: 065
     Dates: start: 20091208
  3. FOLIC ACID [Concomitant]
     Indication: VITAMIN SUPPLEMENTATION
     Dosage: UNK, UNKNOWN
     Route: 065
  4. VITAMIN B-12 [Concomitant]
     Indication: VITAMIN SUPPLEMENTATION
     Dosage: UNK, UNKNOWN
     Route: 065
  5. CORTANCYL [Concomitant]
     Indication: PROPHYLAXIS
     Dosage: UNK, UNKNOWN
     Route: 065
  6. EMEND [Concomitant]
     Dosage: UNK, UNKNOWN
     Route: 065
  7. ONDANSETRON [Concomitant]
     Dosage: UNK, UNKNOWN
     Route: 065
  8. METOCLOPRAMIDE [Concomitant]
     Dosage: UNK, UNKNOWN
     Route: 065
  9. BI-PROFENID [Concomitant]
     Indication: CHEST PAIN
     Dosage: UNK, UNKNOWN
     Route: 065
  10. DI-ANTALVIC [Concomitant]
     Indication: CHEST PAIN
  11. NEXIUM [Concomitant]
     Dosage: UNK, UNKNOWN
     Route: 065
  12. IMOVANE [Concomitant]
     Dosage: UNK, UNKNOWN
     Route: 065

REACTIONS (3)
  - INTERSTITIAL LUNG DISEASE [None]
  - MALIGNANT NEOPLASM PROGRESSION [None]
  - PULMONARY FIBROSIS [None]
